FAERS Safety Report 18908406 (Version 2)
Quarter: 2021Q1

REPORT INFORMATION
  Report Type: Other
  Country: US (occurrence: US)
  Receive Date: 20210218
  Receipt Date: 20210322
  Transmission Date: 20210420
  Serious: Yes (Hospitalization)
  Sender: FDA-Public Use
  Company Number: US-ROCHE-2770182

PATIENT
  Sex: Female

DRUGS (20)
  1. OCREVUS [Suspect]
     Active Substance: OCRELIZUMAB
     Indication: RELAPSING MULTIPLE SCLEROSIS
     Dosage: DAY 1
     Route: 042
     Dates: start: 20210125
  2. DULOXETINE. [Concomitant]
     Active Substance: DULOXETINE
     Dosage: DELAYED RELEASE
     Route: 048
  3. BACLOFEN. [Concomitant]
     Active Substance: BACLOFEN
     Route: 048
  4. KLONOPIN [Suspect]
     Active Substance: CLONAZEPAM
     Indication: PRODUCT USED FOR UNKNOWN INDICATION
     Route: 048
  5. MAGNESIUM OXIDE. [Concomitant]
     Active Substance: MAGNESIUM OXIDE
     Route: 048
  6. PANTOPRAZOLE [Concomitant]
     Active Substance: PANTOPRAZOLE
     Dosage: DELAYED RELEASE
     Route: 048
  7. MECLIZINE [Concomitant]
     Active Substance: MECLIZINE HYDROCHLORIDE
     Route: 048
  8. LIPITOR [Concomitant]
     Active Substance: ATORVASTATIN CALCIUM
     Route: 048
  9. REGLAN [Concomitant]
     Active Substance: METOCLOPRAMIDE HYDROCHLORIDE
     Route: 048
  10. MIDODRINE [Concomitant]
     Active Substance: MIDODRINE
     Route: 048
  11. VENTOLIN HFA [Concomitant]
     Active Substance: ALBUTEROL SULFATE
     Dosage: 90 MCG/INHALATION
  12. COLACE [Concomitant]
     Active Substance: DOCUSATE SODIUM
     Route: 048
  13. SYNTHROID [Concomitant]
     Active Substance: LEVOTHYROXINE SODIUM
     Route: 048
  14. LUVOX [Concomitant]
     Active Substance: FLUVOXAMINE MALEATE
     Dosage: 4 TABLETS NIGHTLY
     Route: 048
  15. LIDOCAINE. [Concomitant]
     Active Substance: LIDOCAINE
     Dosage: 1 PATCH APPLIED TOPICALLY ON 12 HOURS, OFF 12 HOURS, UP TO 3 SITES
     Route: 061
  16. VITAMIN B2 [Concomitant]
     Active Substance: RIBOFLAVIN
     Dosage: 4 TABLETS
     Route: 048
  17. GABAPENTIN. [Concomitant]
     Active Substance: GABAPENTIN
     Route: 048
  18. METHYLPREDNISOLONE. [Concomitant]
     Active Substance: METHYLPREDNISOLONE
  19. CLARITIN [Concomitant]
     Active Substance: LORATADINE
     Route: 048
  20. NATALIZUMAB [Concomitant]
     Active Substance: NATALIZUMAB

REACTIONS (5)
  - Hemiparesis [Unknown]
  - Pruritus [Unknown]
  - Throat irritation [Unknown]
  - Nausea [Unknown]
  - Urticaria [Unknown]
